FAERS Safety Report 6345572-5 (Version None)
Quarter: 2009Q3

REPORT INFORMATION
  Report Type: 
  Country: None (occurrence: None)
  Receive Date: 20090909
  Receipt Date: 20090827
  Transmission Date: 20100115
  Serious: Yes (Other)
  Sender: FDA-Public Use
  Company Number: IE-PFIZER INC-2009244505

PATIENT
  Age: 55 Year

DRUGS (7)
  1. CHAMPIX [Suspect]
     Indication: SMOKING CESSATION THERAPY
     Dosage: 0.5 MG, 1X/DAY 3/7
     Route: 048
     Dates: start: 20090508, end: 20090511
  2. NU-SEALS ASPIRIN [Concomitant]
     Indication: ANTICOAGULANT THERAPY
     Dosage: 75 MG, 1X/DAY
     Route: 048
     Dates: start: 20090415
  3. PLAVIX [Concomitant]
     Indication: STENT PLACEMENT
     Dosage: 75 MG, 1X/DAY
     Route: 048
     Dates: start: 20090415
  4. EMCOR [Concomitant]
     Indication: HEART RATE
     Dosage: 2.5 MG, 1X/DAY
     Route: 048
     Dates: start: 20090415
  5. LIPITOR [Concomitant]
     Indication: HYPERCHOLESTEROLAEMIA
     Dosage: 80 MG, 1X/DAY
     Route: 048
     Dates: start: 20090415
  6. TRITACE [Concomitant]
     Indication: BLOOD PRESSURE MANAGEMENT
     Dosage: 2.5 MG, 1X/DAY
     Route: 048
     Dates: start: 20090415
  7. XANAX [Concomitant]
     Dosage: 0.25 MG, 1X/DAY

REACTIONS (1)
  - SKIN EXFOLIATION [None]
